FAERS Safety Report 23355493 (Version 2)
Quarter: 2024Q1

REPORT INFORMATION
  Report Type: Spontaneous
  Country: JP (occurrence: JP)
  Receive Date: 20240102
  Receipt Date: 20240131
  Transmission Date: 20240410
  Serious: Yes (Other)
  Sender: FDA-Public Use
  Company Number: JP-MSD-M2023-56968

PATIENT
  Age: 6 Decade
  Sex: Female

DRUGS (1)
  1. ZERBAXA [Suspect]
     Active Substance: CEFTOLOZANE SULFATE\TAZOBACTAM SODIUM
     Dosage: 1500 MILLIGRAM, TID
     Route: 041
     Dates: start: 202312

REACTIONS (2)
  - Bradycardia [Unknown]
  - Pyrexia [Unknown]

NARRATIVE: CASE EVENT DATE: 20231201
